FAERS Safety Report 4318692-4 (Version None)
Quarter: 2004Q1

REPORT INFORMATION
  Report Type: 
  Country: None (occurrence: None)
  Receive Date: 20040316
  Receipt Date: 20040316
  Transmission Date: 20041129
  Serious: Yes (Other)
  Sender: FDA-Public Use
  Company Number: None

PATIENT
  Age: 84 Year
  Sex: Male

DRUGS (1)
  1. NAMENDA [Suspect]
     Indication: DEMENTIA
     Dosage: 10 MG PO 2 X/DAY
     Route: 048
     Dates: start: 20040212, end: 20040311

REACTIONS (2)
  - ABNORMAL BEHAVIOUR [None]
  - EXCESSIVE MASTURBATION [None]
